FAERS Safety Report 13547225 (Version 8)
Quarter: 2021Q1

REPORT INFORMATION
  Report Type: Spontaneous
  Country: US (occurrence: US)
  Receive Date: 20170515
  Receipt Date: 20210310
  Transmission Date: 20210419
  Serious: Yes (Hospitalization, Other)
  Sender: FDA-Public Use
  Company Number: US-PFIZER INC-2017208793

PATIENT
  Age: 73 Year
  Sex: Female

DRUGS (1)
  1. XELJANZ [Suspect]
     Active Substance: TOFACITINIB CITRATE
     Indication: RHEUMATOID ARTHRITIS
     Dosage: 5 MG, UNK
     Route: 048

REACTIONS (10)
  - Accident [Unknown]
  - Asthenia [Unknown]
  - Ulcer haemorrhage [Unknown]
  - Rib fracture [Unknown]
  - Myocardial infarction [Unknown]
  - Feeling abnormal [Unknown]
  - Fall [Unknown]
  - Illness [Unknown]
  - Atrial fibrillation [Unknown]
  - Diarrhoea [Unknown]
